FAERS Safety Report 9475521 (Version 1)
Quarter: 2013Q3

REPORT INFORMATION
  Report Type: Report from Study
  Country: AR (occurrence: AR)
  Receive Date: 20130826
  Receipt Date: 20130826
  Transmission Date: 20140515
  Serious: Yes (Hospitalization)
  Sender: FDA-Public Use
  Company Number: AR-ROCHE-1265944

PATIENT
  Age: 77 Year
  Sex: Male

DRUGS (1)
  1. LUCENTIS [Suspect]
     Indication: EYE SWELLING
     Route: 050
     Dates: start: 2011, end: 2011

REACTIONS (2)
  - Neurological symptom [Not Recovered/Not Resolved]
  - Cerebrovascular accident [Not Recovered/Not Resolved]
